FAERS Safety Report 24100602 (Version 2)
Quarter: 2024Q3

REPORT INFORMATION
  Report Type: Report from Study
  Country: GB (occurrence: GB)
  Receive Date: 20240717
  Receipt Date: 20240905
  Transmission Date: 20241017
  Serious: Yes (Other)
  Sender: SANDOZ
  Company Number: GB-SANDOZ-SDZ2024GB028535

PATIENT
  Sex: Female

DRUGS (1)
  1. HYRIMOZ [Suspect]
     Active Substance: ADALIMUMAB-ADAZ
     Indication: Rheumatoid arthritis
     Dosage: 40 MG, QW PREVIOUS STRENGTH: 40/0.8 MG/ML
     Route: 058
     Dates: start: 20231202

REACTIONS (6)
  - Chest injury [Unknown]
  - Somnolence [Unknown]
  - Rib fracture [Unknown]
  - Injury [Unknown]
  - Product storage error [Unknown]
  - Wrong technique in device usage process [Unknown]
